FAERS Safety Report 4995356-5 (Version None)
Quarter: 2006Q2

REPORT INFORMATION
  Report Type: 
  Country: None (occurrence: None)
  Receive Date: 20060508
  Receipt Date: 20050401
  Transmission Date: 20061013
  Serious: Yes (Other)
  Sender: FDA-Public Use
  Company Number: DE-BRISTOL-MYERS SQUIBB COMPANY-13342738

PATIENT
  Sex: Male
  Weight: 90 kg

DRUGS (12)
  1. REYATAZ [Suspect]
     Indication: HIV INFECTION
     Dosage: DOSAGE IN MAR-2005: 300 MG 1 PER DAY.
     Dates: start: 20030701
  2. EFAVIRENZ [Suspect]
     Indication: HIV INFECTION
     Dates: start: 19970101
  3. SAQUINAVIR [Concomitant]
     Indication: HIV INFECTION
     Dosage: THERAPY: 1996/1997; FEB-2003-JUL-2003 1000 MG TWICE DAILY; JUL-2003; DOSAGE IN MAR-2005 1600MG DAILY
  4. INDINIVIR SULFATE [Concomitant]
     Indication: HIV INFECTION
     Dosage: THERAPY: 1996/1997
  5. LAMIVUDINE [Concomitant]
     Indication: HIV INFECTION
     Dosage: THERAPY IN NOV-2001 150 MG DAILY
     Dates: start: 19970101, end: 20030101
  6. ZIDOVUDINE [Concomitant]
     Indication: HIV INFECTION
     Dosage: THERAPY IN NOV-2001 300 MG DAILY
     Dates: start: 19970101, end: 20030101
  7. LOPINAVIR [Concomitant]
     Indication: HIV INFECTION
     Dates: start: 20030201, end: 20030701
  8. RITONAVIR [Concomitant]
     Dosage: THERAPY: FEB-2003-JUL-2003; JUL-2003; DOSAGE IN MAR-2005 100 MG DAILY
     Dates: start: 20030201
  9. COAGULATION FACTOR VIII [Concomitant]
     Indication: FACTOR VIII DEFICIENCY
     Dates: start: 20011101
  10. FLUCONAZOLE [Concomitant]
     Indication: ORAL CANDIDIASIS
     Dates: start: 20030101
  11. CO-TRIMOXAZOLE [Concomitant]
     Indication: ANTIBIOTIC PROPHYLAXIS
     Dosage: THERAPY: 2003/2004
  12. LOPERAMIDE [Concomitant]
     Indication: DIARRHOEA
     Dosage: THERAPY: 2003 8 CAPS DAILY; 2005 2 CAPS DAILY

REACTIONS (8)
  - DIARRHOEA [None]
  - DRUG RESISTANCE [None]
  - HYPERLIPIDAEMIA [None]
  - JAUNDICE [None]
  - LEUKOPLAKIA ORAL [None]
  - LYMPHADENOPATHY [None]
  - NERVOUS SYSTEM DISORDER [None]
  - ORAL CANDIDIASIS [None]
